FAERS Safety Report 5503046-5 (Version None)
Quarter: 2007Q4

REPORT INFORMATION
  Report Type: 
  Country: None (occurrence: None)
  Receive Date: 20071031
  Receipt Date: 20071023
  Transmission Date: 20080405
  Serious: Yes (Hospitalization, Other)
  Sender: FDA-Public Use
  Company Number: US-ROCHE-527251

PATIENT
  Age: 43 Year
  Sex: Male

DRUGS (2)
  1. PEG-INTERFERON A-2A (RO 25-8310) [Suspect]
     Route: 065
     Dates: start: 20070816
  2. RIBAVIRIN [Suspect]
     Route: 065
     Dates: start: 20070816

REACTIONS (3)
  - ANAEMIA [None]
  - ASTHMA [None]
  - BLOOD GLUCOSE INCREASED [None]
